FAERS Safety Report 15434774 (Version 1)
Quarter: 2018Q3

REPORT INFORMATION
  Report Type: Report from Study
  Country: PK (occurrence: PK)
  Receive Date: 20180927
  Receipt Date: 20180927
  Transmission Date: 20181010
  Serious: Yes (Death)
  Sender: FDA-Public Use
  Company Number: PK-ROCHE-2190063

PATIENT
  Age: 60 Year
  Sex: Female

DRUGS (1)
  1. HERCEPTIN [Suspect]
     Active Substance: TRASTUZUMAB
     Indication: BREAST CANCER
     Dosage: SECOND DOSE WAS ON 30/APR/2018, THIRD DOSE WAS ON 30/MAY/2018, FOURTH DOSE WAS ON 30/JUN/2018 AND FI
     Route: 042
     Dates: start: 20180330

REACTIONS (1)
  - Breast haemorrhage [Fatal]

NARRATIVE: CASE EVENT DATE: 20180919
